FAERS Safety Report 5577250-4 (Version None)
Quarter: 2007Q4

REPORT INFORMATION
  Report Type: 
  Country: None (occurrence: None)
  Receive Date: 20071228
  Receipt Date: 20071226
  Transmission Date: 20080405
  Serious: Yes (Congenital Anomaly)
  Sender: FDA-Public Use
  Company Number: FR-MERCK-0603FRA00051

PATIENT
  Sex: Female

DRUGS (3)
  1. COSOPT [Suspect]
     Indication: DEVELOPMENTAL GLAUCOMA
     Route: 064
     Dates: end: 20060216
  2. ACETAZOLAMIDE [Concomitant]
     Indication: DEVELOPMENTAL GLAUCOMA
     Route: 064
     Dates: end: 20060216
  3. BRIMONIDINE TARTRATE [Concomitant]
     Indication: DEVELOPMENTAL GLAUCOMA
     Route: 064
     Dates: end: 20060216

REACTIONS (1)
  - CLEFT PALATE [None]
